FAERS Safety Report 18650530 (Version 3)
Quarter: 2021Q1

REPORT INFORMATION
  Report Type: Other
  Country: CZ (occurrence: CZ)
  Receive Date: 20201223
  Receipt Date: 20210104
  Transmission Date: 20210419
  Serious: Yes (Other)
  Sender: FDA-Public Use
  Company Number: CZ-ROCHE-2735749

PATIENT
  Age: 61 Year
  Sex: Female

DRUGS (5)
  1. PACLITAXEL. [Suspect]
     Active Substance: PACLITAXEL
     Dosage: UNK
     Route: 065
     Dates: start: 20160425, end: 20170216
  2. CARBOPLATIN. [Suspect]
     Active Substance: CARBOPLATIN
     Dosage: UNK
     Route: 065
     Dates: start: 20160425, end: 20170216
  3. AVASTIN [Suspect]
     Active Substance: BEVACIZUMAB
     Indication: OVARIAN CANCER STAGE IV
     Route: 065
     Dates: start: 20160425, end: 20170216
  4. PACLITAXEL. [Suspect]
     Active Substance: PACLITAXEL
     Indication: OVARIAN CANCER STAGE IV
     Dosage: UNK
     Route: 065
     Dates: start: 20180803
  5. CARBOPLATIN. [Suspect]
     Active Substance: CARBOPLATIN
     Indication: OVARIAN CANCER STAGE IV
     Dosage: UNK
     Route: 065
     Dates: start: 20180803

REACTIONS (6)
  - Polyneuropathy [Unknown]
  - Nausea [Unknown]
  - Ovarian cancer recurrent [Recovered/Resolved]
  - Febrile neutropenia [Recovered/Resolved]
  - Hepatic mass [Unknown]
  - Fatigue [Unknown]

NARRATIVE: CASE EVENT DATE: 20170216
